FAERS Safety Report 7607589-X (Version None)
Quarter: 2011Q3

REPORT INFORMATION
  Report Type: 
  Country: None (occurrence: None)
  Receive Date: 20110713
  Receipt Date: 20110706
  Transmission Date: 20111222
  Serious: Yes (Death, Hospitalization)
  Sender: FDA-Public Use
  Company Number: PHHY2011US53448

PATIENT
  Sex: Female
  Weight: 76 kg

DRUGS (7)
  1. NEURONTIN [Concomitant]
     Indication: NEUROPATHY PERIPHERAL
     Dosage: 100 MG, TID
     Route: 048
     Dates: start: 20080801, end: 20110522
  2. GLIPIZIDE [Concomitant]
     Indication: DIABETES MELLITUS
     Dosage: 5 MG, DAILY
     Route: 048
     Dates: start: 20080801, end: 20110522
  3. AMIODARONE HCL [Concomitant]
     Indication: ARRHYTHMIA
     Dosage: 200 MG, DAILY
     Route: 048
     Dates: start: 20080801, end: 20110522
  4. COUMADIN [Concomitant]
     Indication: DEEP VEIN THROMBOSIS
     Route: 048
     Dates: start: 20070401, end: 20110522
  5. EXJADE [Suspect]
     Indication: IRON OVERLOAD
  6. QUINAPRIL HCL [Concomitant]
     Indication: HYPERTENSION
     Dosage: 20 MG, BID
     Route: 048
     Dates: start: 20080801, end: 20110522
  7. EXJADE [Suspect]
     Indication: MYELODYSPLASTIC SYNDROME
     Dosage: 1500 MG, DAILY
     Route: 048
     Dates: start: 20100604, end: 20110522

REACTIONS (11)
  - OEDEMA PERIPHERAL [None]
  - UNRESPONSIVE TO STIMULI [None]
  - ATRIAL FIBRILLATION [None]
  - SEPSIS [None]
  - PNEUMONIA [None]
  - CONVULSION [None]
  - FLUSHING [None]
  - LOSS OF CONSCIOUSNESS [None]
  - CELLULITIS [None]
  - UPPER RESPIRATORY TRACT INFECTION [None]
  - RESPIRATORY ARREST [None]
